FAERS Safety Report 6059019-X (Version None)
Quarter: 2009Q1

REPORT INFORMATION
  Report Type: 
  Country: None (occurrence: None)
  Receive Date: 20090130
  Receipt Date: 20090126
  Transmission Date: 20090719
  Serious: Yes (Hospitalization)
  Sender: FDA-Public Use
  Company Number: B0540015A

PATIENT
  Age: 52 Year
  Sex: Female

DRUGS (9)
  1. SERETIDE [Suspect]
     Indication: ASTHMA
     Dosage: 2PUFF TWICE PER DAY
     Route: 055
  2. VENTOLIN [Suspect]
     Indication: ASTHMA
     Dosage: 100MCG AS REQUIRED
     Route: 055
  3. PREDNISOLONE [Suspect]
     Indication: DRUG USE FOR UNKNOWN INDICATION
     Dosage: 10MG PER DAY
     Route: 048
  4. SINGULAIR [Suspect]
     Indication: DRUG USE FOR UNKNOWN INDICATION
     Dosage: 1TAB AT NIGHT
     Route: 065
     Dates: start: 20080601
  5. THEOPHYLLINE [Suspect]
     Indication: DRUG USE FOR UNKNOWN INDICATION
     Route: 065
  6. TEGRETOL [Suspect]
     Indication: EPILEPSY
     Route: 065
     Dates: start: 20020101
  7. KEPPRA [Suspect]
     Indication: EPILEPSY
     Route: 065
     Dates: start: 20020101
  8. DIAZEPAM [Suspect]
     Indication: EPILEPSY
     Route: 065
     Dates: start: 20020101
  9. NICOTINE [Suspect]
     Indication: DRUG USE FOR UNKNOWN INDICATION
     Route: 062
     Dates: start: 20090122

REACTIONS (3)
  - BACK PAIN [None]
  - COUGH [None]
  - DYSPNOEA [None]
